FAERS Safety Report 19490697 (Version 1)
Quarter: 2021Q3

REPORT INFORMATION
  Report Type: Spontaneous
  Country: DE (occurrence: DE)
  Receive Date: 20210705
  Receipt Date: 20210705
  Transmission Date: 20211014
  Serious: Yes (Hospitalization)
  Sender: FDA-Public Use
  Company Number: DE-TEVA-2021-DE-1929393

PATIENT
  Age: 53 Year
  Sex: Male
  Weight: 76 kg

DRUGS (3)
  1. SULFAMETHOXAZOL/TRIMETHOPRIM [Suspect]
     Active Substance: SULFAMETHOXAZOLE\TRIMETHOPRIM
     Dosage: 1 DOSAGE FORMS DAILY; 800|160 MG, 0?1?0?0
     Route: 048
  2. ANORO ELLIPTA 55 MIKROGRAMM/22 MIKROGRAMM EINZELDOSIERTES PULVER ZUR I [Concomitant]
     Dosage: 1 DOSAGE FORMS DAILY; 92|65|22 UG, 1?0?0?0,
     Route: 055
  3. BIKTARVY [Suspect]
     Active Substance: BICTEGRAVIR SODIUM\EMTRICITABINE\TENOFOVIR ALAFENAMIDE FUMARATE
     Dosage: 1 DOSAGE FORMS DAILY; 50|200|25 MG, 0?0?0?1
     Route: 048

REACTIONS (7)
  - Cold sweat [Unknown]
  - Weight decreased [Unknown]
  - Fatigue [Unknown]
  - Abdominal pain [Unknown]
  - Nausea [Unknown]
  - Vomiting [Unknown]
  - General physical health deterioration [Unknown]
